FAERS Safety Report 7529856-0 (Version None)
Quarter: 2011Q2

REPORT INFORMATION
  Report Type: 
  Country: None (occurrence: None)
  Receive Date: 20110607
  Receipt Date: 20110523
  Transmission Date: 20111010
  Serious: Yes (Hospitalization, Other)
  Sender: FDA-Public Use
  Company Number: US-BAYER-2011-018808

PATIENT
  Age: 20 Year
  Sex: Female

DRUGS (12)
  1. PRILOSEC [Concomitant]
  2. AZITHROMYCIN [Concomitant]
     Dosage: 500 MG, UNK
     Route: 048
  3. METFORMIN HCL [Concomitant]
     Indication: METABOLIC SYNDROME
  4. YASMIN [Suspect]
     Indication: POLYCYSTIC OVARIES
  5. METRONIDAZOLE [Concomitant]
  6. YAZ [Suspect]
     Indication: CONTRACEPTION
     Dosage: UNK
     Dates: start: 20080101, end: 20090101
  7. LOTRISONE [Concomitant]
  8. BYETTA [Concomitant]
  9. YAZ [Suspect]
     Indication: POLYCYSTIC OVARIES
  10. CARAFATE [Concomitant]
     Indication: PAIN
  11. LORTAB [Concomitant]
  12. YASMIN [Suspect]
     Indication: CONTRACEPTION
     Dosage: UNK
     Dates: start: 20080101, end: 20090101

REACTIONS (6)
  - WEIGHT FLUCTUATION [None]
  - CHOLELITHIASIS [None]
  - HEPATOBILIARY DISEASE [None]
  - CHOLECYSTITIS CHRONIC [None]
  - AMENORRHOEA [None]
  - CHOLECYSTECTOMY [None]
